FAERS Safety Report 23474302 (Version 1)
Quarter: 2024Q1

REPORT INFORMATION
  Report Type: Report from Study
  Country: US (occurrence: US)
  Receive Date: 20240204
  Receipt Date: 20240204
  Transmission Date: 20240410
  Serious: Yes (Hospitalization)
  Sender: FDA-Public Use
  Company Number: US-EXELIXIS-CABO-23061308

PATIENT
  Sex: Male
  Weight: 70.748 kg

DRUGS (26)
  1. CABOMETYX [Suspect]
     Active Substance: CABOZANTINIB S-MALATE
     Indication: Renal cell carcinoma
     Dosage: 40 MG, QD
     Route: 048
     Dates: start: 20221026, end: 202304
  2. CABOMETYX [Suspect]
     Active Substance: CABOZANTINIB S-MALATE
     Indication: Immune system disorder
  3. LENVIMA [Suspect]
     Active Substance: LENVATINIB
     Indication: Renal cell carcinoma
     Dosage: UNK
  4. LENVIMA [Suspect]
     Active Substance: LENVATINIB
     Indication: Immune system disorder
     Dosage: UNK ( REDUCED DOSE)
  5. PROMETHAZINE [Concomitant]
     Active Substance: PROMETHAZINE HYDROCHLORIDE
  6. MAGNESIUM [Concomitant]
     Active Substance: MAGNESIUM
  7. LOPERAMIDE [Concomitant]
     Active Substance: LOPERAMIDE
  8. VITAMIN B12 [Concomitant]
     Active Substance: CYANOCOBALAMIN
  9. TROSPIUM [Concomitant]
     Active Substance: TROSPIUM
  10. POTASSIUM [Concomitant]
     Active Substance: POTASSIUM
  11. PANTOPRAZOLE [Concomitant]
     Active Substance: PANTOPRAZOLE
  12. OMEPRAZOLE [Concomitant]
     Active Substance: OMEPRAZOLE
  13. FISH OIL [Concomitant]
     Active Substance: FISH OIL
  14. NITROGLYCERIN [Concomitant]
     Active Substance: NITROGLYCERIN
  15. LOSARTAN [Concomitant]
     Active Substance: LOSARTAN
  16. LANTUS [Concomitant]
     Active Substance: INSULIN GLARGINE
  17. HUMALOG [Concomitant]
     Active Substance: INSULIN LISPRO
  18. HYDROCHLOROTHIAZIDE [Concomitant]
     Active Substance: HYDROCHLOROTHIAZIDE
  19. HYDRALAZINE [Concomitant]
     Active Substance: HYDRALAZINE HYDROCHLORIDE
  20. GABAPENTIN [Concomitant]
     Active Substance: GABAPENTIN
  21. PLAVIX [Concomitant]
     Active Substance: CLOPIDOGREL BISULFATE
  22. ZYRTEC [Concomitant]
     Active Substance: CETIRIZINE HYDROCHLORIDE
  23. BYSTOLIC [Concomitant]
     Active Substance: NEBIVOLOL HYDROCHLORIDE
  24. ATORVASTATIN [Concomitant]
     Active Substance: ATORVASTATIN
  25. AMLODIPINE [Concomitant]
     Active Substance: AMLODIPINE BESYLATE
  26. EVEROLIMUS [Concomitant]
     Active Substance: EVEROLIMUS

REACTIONS (5)
  - Rash [Unknown]
  - Palmar-plantar erythrodysaesthesia syndrome [Unknown]
  - Weight decreased [Unknown]
  - Dry mouth [Unknown]
  - Taste disorder [Unknown]
